FAERS Safety Report 20785158 (Version 2)
Quarter: 2022Q2

REPORT INFORMATION
  Report Type: Spontaneous
  Country: US (occurrence: US)
  Receive Date: 20220504
  Receipt Date: 20220517
  Transmission Date: 20220721
  Serious: No
  Sender: FDA-Public Use
  Company Number: US-ALNYLAM PHARMACEUTICALS, INC.-ALN-2022-001427

PATIENT

DRUGS (1)
  1. ONPATTRO [Suspect]
     Active Substance: PATISIRAN SODIUM
     Indication: Hereditary neuropathic amyloidosis
     Route: 042

REACTIONS (9)
  - Pain [Recovering/Resolving]
  - Cardiac disorder [Unknown]
  - Balance disorder [Unknown]
  - Headache [Recovered/Resolved]
  - Deafness unilateral [Unknown]
  - Bradykinesia [Unknown]
  - Erythema [Recovered/Resolved]
  - Chest discomfort [Unknown]
  - Unevaluable event [Unknown]
